FAERS Safety Report 4840814-7 (Version None)
Quarter: 2005Q4

REPORT INFORMATION
  Report Type: 
  Country: None (occurrence: None)
  Receive Date: 20051130
  Receipt Date: 20050314
  Transmission Date: 20060501
  Serious: Yes (Other)
  Sender: FDA-Public Use
  Company Number: US-BRISTOL-MYERS SQUIBB COMPANY-12898292

PATIENT
  Sex: Male

DRUGS (2)
  1. AVALIDE [Suspect]
     Dosage: ON THERAPY FOR OVER 1 YEAR
     Route: 048
     Dates: start: 20040101
  2. ANTIBIOTIC [Suspect]

REACTIONS (1)
  - BLOOD GLUCOSE ABNORMAL [None]
